FAERS Safety Report 6015177-4 (Version None)
Quarter: 2008Q4

REPORT INFORMATION
  Report Type: 
  Country: None (occurrence: None)
  Receive Date: 20081222
  Receipt Date: 20081211
  Transmission Date: 20090506
  Serious: Yes (Hospitalization, Other)
  Sender: FDA-Public Use
  Company Number: GB-JNJFOC-20081203598

PATIENT
  Sex: Female
  Weight: 65 kg

DRUGS (9)
  1. REMICADE [Suspect]
     Indication: ANKYLOSING SPONDYLITIS
     Route: 042
  2. AMITRIPTYLINE HCL [Concomitant]
  3. CALCICHEW [Concomitant]
  4. CLIMAVAL [Concomitant]
  5. CLOMIPRAMINE HYDROCHLORIDE [Concomitant]
  6. EPILIM [Concomitant]
  7. LAMOTRIGINE [Concomitant]
  8. MOBIC [Concomitant]
  9. ACETAMINOPHEN [Concomitant]

REACTIONS (2)
  - DUODENAL ULCER HAEMORRHAGE [None]
  - OESOPHAGITIS [None]
